FAERS Safety Report 23889296 (Version 1)
Quarter: 2024Q2

REPORT INFORMATION
  Report Type: Spontaneous
  Country: US (occurrence: US)
  Receive Date: 20240523
  Receipt Date: 20240523
  Transmission Date: 20240716
  Serious: No
  Sender: FDA-Public Use
  Company Number: US-ABBVIE-5766054

PATIENT
  Sex: Female

DRUGS (1)
  1. ARMOUR THYROID [Suspect]
     Active Substance: THYROID, PORCINE
     Indication: Product used for unknown indication
     Dosage: FORM STRENGTH: 60 MG
     Route: 048
     Dates: start: 2023

REACTIONS (12)
  - Dyspnoea [Unknown]
  - Constipation [Unknown]
  - Incoherent [Unknown]
  - Sleep disorder [Unknown]
  - Fatigue [Recovered/Resolved]
  - Fatigue [Unknown]
  - Eye pain [Unknown]
  - Therapeutic product effect incomplete [Unknown]
  - Headache [Unknown]
  - Arthralgia [Unknown]
  - Malaise [Unknown]
  - Hypothyroidism [Unknown]

NARRATIVE: CASE EVENT DATE: 20240101
